FAERS Safety Report 6306551-7 (Version None)
Quarter: 2009Q3

REPORT INFORMATION
  Report Type: 
  Country: None (occurrence: None)
  Receive Date: 20090811
  Receipt Date: 20090811
  Transmission Date: 20100115
  Serious: Yes (Hospitalization)
  Sender: FDA-Public Use
  Company Number: None

PATIENT
  Age: 79 Year
  Sex: Male
  Weight: 88.2 kg

DRUGS (1)
  1. INSULIN [Suspect]
     Indication: DIABETES MELLITUS
     Dosage: 15 UNITS AM SQ
     Dates: start: 20090709, end: 20090727

REACTIONS (5)
  - CHOKING [None]
  - DECREASED APPETITE [None]
  - HYPOGLYCAEMIA [None]
  - TONIC CLONIC MOVEMENTS [None]
  - UNRESPONSIVE TO STIMULI [None]
